FAERS Safety Report 19902223 (Version 1)
Quarter: 2021Q3

REPORT INFORMATION
  Report Type: Report from Study
  Country: ES (occurrence: ES)
  Receive Date: 20210930
  Receipt Date: 20210930
  Transmission Date: 20211014
  Serious: Yes (Hospitalization, Disabling)
  Sender: FDA-Public Use
  Company Number: ES-ASTRAZENECA-2021A724637

PATIENT
  Age: 199 Month
  Sex: Female
  Weight: 51.3 kg

DRUGS (2)
  1. SELUMETINIB. [Suspect]
     Active Substance: SELUMETINIB
     Route: 048
     Dates: start: 20180309, end: 20210406
  2. SELUMETINIB. [Suspect]
     Active Substance: SELUMETINIB
     Route: 048
     Dates: start: 20210611

REACTIONS (1)
  - Paronychia [Recovered/Resolved with Sequelae]

NARRATIVE: CASE EVENT DATE: 202103
